FAERS Safety Report 6810211-3 (Version None)
Quarter: 2010Q2

REPORT INFORMATION
  Report Type: 
  Country: None (occurrence: None)
  Receive Date: 20100630
  Receipt Date: 20100623
  Transmission Date: 20101027
  Serious: Yes (Hospitalization)
  Sender: FDA-Public Use
  Company Number: JP-SANOFI-AVENTIS-2010SA036313

PATIENT
  Age: 27 Year
  Sex: Female

DRUGS (2)
  1. APIDRA [Suspect]
     Route: 058
     Dates: start: 20090807
  2. LANTUS [Suspect]
     Route: 058

REACTIONS (1)
  - OVARIAN NEOPLASM [None]
